FAERS Safety Report 11182739 (Version 2)
Quarter: 2015Q3

REPORT INFORMATION
  Report Type: Spontaneous
  Country: US (occurrence: US)
  Receive Date: 20150611
  Receipt Date: 20150824
  Transmission Date: 20151125
  Serious: No
  Sender: FDA-Public Use
  Company Number: US-PFIZER INC-2015195317

PATIENT
  Age: 75 Year
  Sex: Female
  Weight: 71 kg

DRUGS (8)
  1. LYRICA [Suspect]
     Active Substance: PREGABALIN
     Indication: NEUROPATHY PERIPHERAL
     Dosage: 50 MG, 2X/DAY
  2. LYRICA [Suspect]
     Active Substance: PREGABALIN
     Indication: FIBROMYALGIA
     Dosage: 50 MG, 3X/DAY
  3. CEPHALEXIN. [Suspect]
     Active Substance: CEPHALEXIN
     Indication: CYSTITIS
     Dosage: 250 MG, 4X/DAY
     Dates: start: 2015
  4. TYLENOL [Concomitant]
     Active Substance: ACETAMINOPHEN
     Indication: ARTHRITIS
     Dosage: 500 MG, 1X/DAY
  5. LORAZEPAM. [Concomitant]
     Active Substance: LORAZEPAM
     Indication: ANXIETY
     Dosage: 1 MG, 3X/DAY
     Dates: start: 1972
  6. VITAMIN D3 [Concomitant]
     Active Substance: CHOLECALCIFEROL
     Dosage: 1000 MG, 1X/DAY
     Dates: start: 2003
  7. CEPHALEXIN. [Suspect]
     Active Substance: CEPHALEXIN
     Indication: URINARY TRACT INFECTION
     Dosage: 250 MG, 3X/DAY
     Dates: start: 2015
  8. TYLENOL [Concomitant]
     Active Substance: ACETAMINOPHEN
     Indication: PYREXIA

REACTIONS (8)
  - Cystitis [Unknown]
  - Tongue ulceration [Recovered/Resolved]
  - Increased appetite [Unknown]
  - Gingival swelling [Recovered/Resolved]
  - Drug hypersensitivity [Recovered/Resolved]
  - Pain [Not Recovered/Not Resolved]
  - Spondylitis [Not Recovered/Not Resolved]
  - Noninfective gingivitis [Recovered/Resolved]

NARRATIVE: CASE EVENT DATE: 2005
